FAERS Safety Report 4339250-1 (Version None)
Quarter: 2004Q2

REPORT INFORMATION
  Report Type: 
  Country: None (occurrence: None)
  Receive Date: 20040414
  Receipt Date: 20040414
  Transmission Date: 20050107
  Serious: Yes (Life-Threatening, Hospitalization, Congenital Anomaly)
  Sender: FDA-Public Use
  Company Number: None

PATIENT
  Sex: Female
  Weight: 65.7716 kg

DRUGS (1)
  1. LINDANE [Suspect]
     Indication: LICE INFESTATION
     Dosage: APPLIED TO INFECTED AREA, HAIR ON HEAD. APPROX 5 OR 6 TIMES IN A PERIOD OF 1 TO 4 WEEKS
     Dates: start: 20010801, end: 20011001

REACTIONS (4)
  - ACCIDENTAL EXPOSURE [None]
  - COMPLICATIONS OF MATERNAL EXPOSURE TO THERAPEUTIC DRUGS [None]
  - LIVER DISORDER [None]
  - PREMATURE BABY [None]
